FAERS Safety Report 6054509-8 (Version None)
Quarter: 2009Q1

REPORT INFORMATION
  Report Type: 
  Country: None (occurrence: None)
  Receive Date: 20090127
  Receipt Date: 20090114
  Transmission Date: 20090719
  Serious: Yes (Hospitalization, Other)
  Sender: FDA-Public Use
  Company Number: PHHY2009FR01746

PATIENT
  Sex: Female

DRUGS (11)
  1. FEMARA [Suspect]
     Indication: BREAST CANCER
     Dosage: 2.5 MG DAILY
     Dates: end: 20081205
  2. DISOPYRAMIDE [Suspect]
     Dosage: UNK
     Dates: end: 20081125
  3. CORVASAL [Suspect]
     Dosage: UNK
     Dates: end: 20081130
  4. SURBRONC [Suspect]
     Dosage: UNK
     Dates: end: 20081125
  5. FORLAX [Suspect]
     Dosage: UNK
     Dates: end: 20081125
  6. LASILIX [Concomitant]
     Dosage: UNK
  7. PRAXILENE [Concomitant]
  8. SERETIDE ^ALLEN + HANBURYS LTD^ [Concomitant]
  9. ACETAMINOPHEN [Concomitant]
  10. ALPHAGAN [Concomitant]
     Dosage: UNK
  11. LUMIGAN [Concomitant]
     Dosage: UNK

REACTIONS (19)
  - ARRHYTHMIA [None]
  - ATRIAL FIBRILLATION [None]
  - BRAIN NATRIURETIC PEPTIDE INCREASED [None]
  - C-REACTIVE PROTEIN INCREASED [None]
  - CARDIOMEGALY [None]
  - CHEST PAIN [None]
  - COUGH [None]
  - DYSPNOEA AT REST [None]
  - EXTRASYSTOLES [None]
  - HEPATOJUGULAR REFLUX [None]
  - LEUKOCYTOSIS [None]
  - MALAISE [None]
  - OEDEMA PERIPHERAL [None]
  - PLEURAL EFFUSION [None]
  - PRODUCTIVE COUGH [None]
  - PULMONARY EMBOLISM [None]
  - PYREXIA [None]
  - TACHYCARDIA [None]
  - VENOUS PRESSURE JUGULAR INCREASED [None]
